FAERS Safety Report 20116261 (Version 3)
Quarter: 2022Q1

REPORT INFORMATION
  Report Type: Spontaneous
  Country: US (occurrence: US)
  Receive Date: 20211126
  Receipt Date: 20220228
  Transmission Date: 20220423
  Serious: No
  Sender: FDA-Public Use
  Company Number: US-BIOGEN-2021BI01071352

PATIENT
  Age: 31 Year
  Sex: Male

DRUGS (2)
  1. TECFIDERA [Suspect]
     Active Substance: DIMETHYL FUMARATE
     Indication: Product used for unknown indication
     Route: 048
     Dates: start: 201904
  2. TECFIDERA [Suspect]
     Active Substance: DIMETHYL FUMARATE
     Route: 048
     Dates: start: 201710

REACTIONS (4)
  - Product dose omission in error [Unknown]
  - Tendonitis [Unknown]
  - Calcinosis [Unknown]
  - Flushing [Unknown]

NARRATIVE: CASE EVENT DATE: 20171001
